FAERS Safety Report 10225849 (Version 2)
Quarter: 2014Q2

REPORT INFORMATION
  Report Type: Spontaneous
  Country: US (occurrence: US)
  Receive Date: 20140609
  Receipt Date: 20140609
  Transmission Date: 20141212
  Serious: Yes (Hospitalization, Other)
  Sender: FDA-Public Use
  Company Number: US-ASTELLAS-2013US004347

PATIENT
  Sex: Female

DRUGS (3)
  1. PROGRAF [Suspect]
     Indication: RENAL TRANSPLANT
     Dosage: 1.5 MG IN THE MORNING AND 1 MG IN THE EVENING
     Route: 065
  2. PROGRAF [Suspect]
     Dosage: 3 MG IN THE MORNING AND 4 MG IN THE EVENING
     Route: 065
  3. CELLCEPT                           /01275102/ [Concomitant]
     Indication: PRODUCT USED FOR UNKNOWN INDICATION
     Route: 065

REACTIONS (5)
  - Drug ineffective [Unknown]
  - Kidney transplant rejection [Unknown]
  - Blood pressure abnormal [Unknown]
  - Immunosuppressant drug level decreased [Unknown]
  - Constipation [Unknown]
